FAERS Safety Report 15908777 (Version 1)
Quarter: 2019Q1

REPORT INFORMATION
  Report Type: Spontaneous
  Country: US (occurrence: US)
  Receive Date: 20190204
  Receipt Date: 20190204
  Transmission Date: 20190417
  Serious: No
  Sender: FDA-Public Use
  Company Number: US-ABBVIE-18K-163-2287974-00

PATIENT
  Age: 38 Year
  Sex: Male

DRUGS (2)
  1. HUMIRA [Suspect]
     Active Substance: ADALIMUMAB
     Indication: UVEITIS
     Route: 058
     Dates: start: 2016
  2. HUMIRA [Suspect]
     Active Substance: ADALIMUMAB
     Indication: ARTHRITIS

REACTIONS (11)
  - Vision blurred [Not Recovered/Not Resolved]
  - Incorrect dose administered [Recovered/Resolved]
  - Product outer packaging issue [Recovered/Resolved]
  - Product storage error [Recovered/Resolved]
  - Restlessness [Not Recovered/Not Resolved]
  - Wrong technique in product usage process [Recovered/Resolved]
  - Fatigue [Recovering/Resolving]
  - Device issue [Recovered/Resolved]
  - Nausea [Recovering/Resolving]
  - Product administration error [Recovered/Resolved]
  - Syringe issue [Recovered/Resolved]

NARRATIVE: CASE EVENT DATE: 201803
